FAERS Safety Report 7905800-9 (Version None)
Quarter: 2011Q4

REPORT INFORMATION
  Report Type: 
  Country: None (occurrence: None)
  Receive Date: 20111108
  Receipt Date: 20111027
  Transmission Date: 20120403
  Serious: Yes (Other)
  Sender: FDA-Public Use
  Company Number: CIO11009344

PATIENT
  Age: 69 Year
  Sex: Male

DRUGS (3)
  1. METAMUCIL-2 [Suspect]
     Indication: BOWEL MOVEMENT IRREGULARITY
     Dosage: 2 CAPSUL, MORNING, ORAL
     Route: 048
     Dates: start: 20100801
  2. CARDIAC THERAPY [Concomitant]
  3. LIPITOR [Concomitant]

REACTIONS (2)
  - NEPHROLITHIASIS [None]
  - WRONG TECHNIQUE IN DRUG USAGE PROCESS [None]
